FAERS Safety Report 6392251-4 (Version None)
Quarter: 2009Q4

REPORT INFORMATION
  Report Type: 
  Country: None (occurrence: None)
  Receive Date: 20091005
  Receipt Date: 20090929
  Transmission Date: 20100525
  Serious: Yes (Other)
  Sender: FDA-Public Use
  Company Number: 2009SP027742

PATIENT
  Age: 23 Year
  Sex: Female

DRUGS (3)
  1. DESLORATADINE [Suspect]
     Indication: DRUG USE FOR UNKNOWN INDICATION
  2. CLARITHROMYCIN [Suspect]
     Indication: DRUG USE FOR UNKNOWN INDICATION
  3. FLUANXOL (FLUPENTIXOL) [Concomitant]

REACTIONS (1)
  - HALLUCINATION [None]
